FAERS Safety Report 7465266-2 (Version None)
Quarter: 2011Q2

REPORT INFORMATION
  Report Type: 
  Country: None (occurrence: None)
  Receive Date: 20110505
  Receipt Date: 20110505
  Transmission Date: 20111010
  Serious: Yes (Life-Threatening, Hospitalization)
  Sender: FDA-Public Use
  Company Number: None

PATIENT
  Age: 18 Year
  Sex: Female
  Weight: 72.5755 kg

DRUGS (2)
  1. ENBREL [Suspect]
     Indication: JUVENILE ARTHRITIS
     Dosage: 12-25MG 2X/WK INJECTION
     Dates: start: 20000101, end: 20040101
  2. HUMIRA [Suspect]
     Indication: JUVENILE ARTHRITIS
     Dosage: 40MG 2X MONTH INJECTION
     Dates: start: 20060101

REACTIONS (1)
  - OVARIAN CANCER [None]
